FAERS Safety Report 24870887 (Version 4)
Quarter: 2025Q1

REPORT INFORMATION
  Report Type: Report from Study
  Country: US (occurrence: US)
  Receive Date: 20250121
  Receipt Date: 20250315
  Transmission Date: 20250409
  Serious: Yes (Hospitalization, Other)
  Sender: ABBVIE
  Company Number: US-ABBVIE-6083853

PATIENT
  Age: 56 Year
  Sex: Female
  Weight: 81.646 kg

DRUGS (1)
  1. RINVOQ [Suspect]
     Active Substance: UPADACITINIB
     Indication: Colitis ulcerative
     Dosage: FORM STRENGTH: 30 MG
     Route: 048
     Dates: start: 20230830

REACTIONS (6)
  - Pneumonia [Not Recovered/Not Resolved]
  - Pain [Unknown]
  - Large intestine polyp [Unknown]
  - Colitis ulcerative [Recovered/Resolved]
  - Malaise [Unknown]
  - Gastrointestinal pain [Recovered/Resolved]

NARRATIVE: CASE EVENT DATE: 20241201
